FAERS Safety Report 12837130 (Version 1)
Quarter: 2016Q4

REPORT INFORMATION
  Report Type: Spontaneous
  Country: US (occurrence: US)
  Receive Date: 20161007
  Receipt Date: 20161007
  Transmission Date: 20170207
  Serious: Yes (Other)
  Sender: FDA-Public Use
  Company Number: None

PATIENT
  Age: 60 Year
  Sex: Male
  Weight: 141.75 kg

DRUGS (20)
  1. POTASSIUM CITRATE. [Concomitant]
     Active Substance: POTASSIUM CITRATE
  2. TRIAMTERENE/HCTZ (MAXZIDE) [Concomitant]
  3. VALSARTAN 160MG SOLCO HEALTHCARE US, LLC. [Suspect]
     Active Substance: VALSARTAN
     Indication: BLOOD PRESSURE INCREASED
     Dosage: ?          QUANTITY:30 TABLET(S);?
     Route: 048
     Dates: start: 20161001, end: 20161006
  4. ALBUTEROL AEROSOL INHALER [Concomitant]
  5. FUROSEMIDE/LASIX [Concomitant]
  6. VITAMIN D [Concomitant]
     Active Substance: CHOLECALCIFEROL
  7. FLUOCINONIDE CREAM [Concomitant]
     Active Substance: FLUOCINONIDE
  8. GLIPIZIDE ER [Concomitant]
     Active Substance: GLIPIZIDE
  9. TESTOSTERONE SUPPLEMENT [Concomitant]
  10. ALLOPURINOL. [Concomitant]
     Active Substance: ALLOPURINOL
  11. DIOVAN/VALSARTAN [Concomitant]
  12. MOTRIN [Concomitant]
     Active Substance: IBUPROFEN
  13. ANDROGEL [Suspect]
     Active Substance: TESTOSTERONE
  14. HYDROCORTISONE. [Concomitant]
     Active Substance: HYDROCORTISONE
  15. KETOCONAZOLE. [Concomitant]
     Active Substance: KETOCONAZOLE
  16. INVOKANA [Concomitant]
     Active Substance: CANAGLIFLOZIN
  17. TRAMADOL HCL [Suspect]
     Active Substance: TRAMADOL HYDROCHLORIDE
  18. JANUVIA [Concomitant]
     Active Substance: SITAGLIPTIN PHOSPHATE
  19. MAGNESIUM OXIDE. [Concomitant]
     Active Substance: MAGNESIUM OXIDE
  20. ASPIRIN. [Concomitant]
     Active Substance: ASPIRIN

REACTIONS (11)
  - Impaired work ability [None]
  - Product substitution issue [None]
  - Product quality issue [None]
  - Hyperhidrosis [None]
  - Dyspnoea [None]
  - Malaise [None]
  - Agitation [None]
  - Product measured potency issue [None]
  - Anxiety [None]
  - Palpitations [None]
  - Dizziness [None]

NARRATIVE: CASE EVENT DATE: 20161003
